FAERS Safety Report 10057023 (Version 2)
Quarter: 2014Q2

REPORT INFORMATION
  Report Type: Spontaneous
  Country: GB (occurrence: GB)
  Receive Date: 20140403
  Receipt Date: 20140403
  Transmission Date: 20141212
  Serious: Yes (Death, Hospitalization)
  Sender: FDA-Public Use
  Company Number: GB-STRP-2012SP000278

PATIENT
  Age: 67 Year
  Sex: Male

DRUGS (8)
  1. EPIRUBICIN (UNKNOWN) [Suspect]
     Indication: GASTRIC CANCER
     Dosage: 50 MG, UNK
     Route: 042
     Dates: start: 20111117
  2. EPIRUBICIN (UNKNOWN) [Suspect]
     Dosage: UNK
     Route: 042
     Dates: start: 20110922
  3. CISPLATIN (UNKNOWN) [Suspect]
     Indication: GASTRIC CANCER
     Dosage: 120 MG, UNK
     Route: 042
     Dates: start: 20111117
  4. CISPLATIN (UNKNOWN) [Suspect]
     Dosage: UNK
     Route: 042
     Dates: start: 20110922
  5. CAPECITABINE (UNKNOWN) [Suspect]
     Indication: GASTRIC CANCER
     Dosage: 5250 MG, UNK
     Route: 048
     Dates: start: 20111208
  6. CAPECITABINE (UNKNOWN) [Suspect]
     Dosage: UNK
     Route: 048
     Dates: start: 20110922
  7. BEVACIZUMAB [Suspect]
     Indication: GASTRIC CANCER
     Dosage: 655 MG, UNK
     Route: 042
     Dates: start: 20111117
  8. BEVACIZUMAB [Suspect]
     Dosage: UNK
     Route: 042
     Dates: start: 20110922

REACTIONS (2)
  - Post procedural haemorrhage [Fatal]
  - Gastrointestinal anastomotic leak [Recovered/Resolved with Sequelae]
